FAERS Safety Report 17520048 (Version 1)
Quarter: 2020Q1

REPORT INFORMATION
  Report Type: Spontaneous
  Country: US (occurrence: US)
  Receive Date: 20200310
  Receipt Date: 20200310
  Transmission Date: 20200409
  Serious: Yes (Other)
  Sender: FDA-Public Use
  Company Number: None

PATIENT
  Age: 64 Year
  Sex: Female
  Weight: 64.35 kg

DRUGS (5)
  1. ATENOLOL. [Concomitant]
     Active Substance: ATENOLOL
  2. SPIRONOLACTONE. [Concomitant]
     Active Substance: SPIRONOLACTONE
  3. LEVOFLOXACIN. [Suspect]
     Active Substance: LEVOFLOXACIN
     Indication: SINUSITIS
     Dosage: ?          QUANTITY:1 TABLET(S);?
     Route: 048
     Dates: start: 20200307, end: 20200307
  4. LEVOFLOXACIN. [Suspect]
     Active Substance: LEVOFLOXACIN
     Indication: EAR INFECTION
     Dosage: ?          QUANTITY:1 TABLET(S);?
     Route: 048
     Dates: start: 20200307, end: 20200307
  5. MULTI VITAMINS GUMMIES [Concomitant]

REACTIONS (17)
  - Tremor [None]
  - Muscular weakness [None]
  - Incoherent [None]
  - Dyskinesia [None]
  - Gait inability [None]
  - Panic disorder [None]
  - Presyncope [None]
  - Feeling cold [None]
  - Dyspnoea [None]
  - Gait disturbance [None]
  - Abdominal pain upper [None]
  - Dizziness [None]
  - Headache [None]
  - Pain [None]
  - Fall [None]
  - Feeling abnormal [None]
  - Vision blurred [None]

NARRATIVE: CASE EVENT DATE: 20200307
